FAERS Safety Report 4929637-8 (Version None)
Quarter: 2006Q1

REPORT INFORMATION
  Report Type: 
  Country: None (occurrence: None)
  Receive Date: 20060224
  Receipt Date: 20060214
  Transmission Date: 20060701
  Serious: Yes (Other)
  Sender: FDA-Public Use
  Company Number: 2006022104

PATIENT
  Age: 40 Year
  Sex: Male
  Weight: 72.5755 kg

DRUGS (1)
  1. CELEBREX [Suspect]
     Indication: PAIN
     Dosage: ORAL
     Route: 048
     Dates: start: 20030101

REACTIONS (7)
  - ARTHRITIS [None]
  - DRUG INEFFECTIVE [None]
  - EMPHYSEMA [None]
  - HEPATITIS C [None]
  - LUNG NEOPLASM MALIGNANT [None]
  - PARANEOPLASTIC SYNDROME [None]
  - POLYMYOSITIS [None]
